FAERS Safety Report 4478198-9 (Version None)
Quarter: 2004Q3

REPORT INFORMATION
  Report Type: 
  Country: None (occurrence: None)
  Receive Date: 20040923
  Receipt Date: 20040625
  Transmission Date: 20050211
  Serious: No
  Sender: FDA-Public Use
  Company Number: USA040671100

PATIENT
  Sex: Female
  Weight: 45 kg

DRUGS (11)
  1. FORTEO [Suspect]
     Indication: OSTEOPOROSIS
     Dosage: 20 UG/1 DAY
     Dates: start: 20040429
  2. PLAVIX [Concomitant]
  3. IMPLANTED PAIN PUP WITH MORPHINE AND BUPIVACAINE [Concomitant]
  4. FOLIC ACID [Concomitant]
  5. SYNTHROID [Concomitant]
  6. MULTIVITAMIN [Concomitant]
  7. COLACE (DOCUSATE SODIUM) [Concomitant]
  8. LAXATIVE [Concomitant]
  9. METAMUCIL-2 [Concomitant]
  10. VITAMIN B12 FOR INJECTION (CYANOCOBALAMIN) [Concomitant]
  11. LAXATIVE [Concomitant]

REACTIONS (5)
  - DIZZINESS [None]
  - FATIGUE [None]
  - HYPERSOMNIA [None]
  - NAUSEA [None]
  - STOMACH DISCOMFORT [None]
